FAERS Safety Report 14690184 (Version 2)
Quarter: 2018Q2

REPORT INFORMATION
  Report Type: Report from Study
  Country: FR (occurrence: FR)
  Receive Date: 20180328
  Receipt Date: 20180409
  Transmission Date: 20180711
  Serious: Yes (Death, Other)
  Sender: FDA-Public Use
  Company Number: FR-PFIZER INC-2018117614

PATIENT
  Age: 57 Year
  Sex: Male

DRUGS (15)
  1. DEXAMETHASONE. [Concomitant]
     Active Substance: DEXAMETHASONE
     Indication: PROPHYLAXIS
     Dosage: 20 MG, SINGLE
     Route: 042
     Dates: start: 20161206, end: 20161206
  2. DEXAMETHASONE. [Concomitant]
     Active Substance: DEXAMETHASONE
     Dosage: 20 MG, SINGLE
     Route: 042
     Dates: start: 20170116, end: 20170116
  3. MORPHINUM HCL [Concomitant]
     Indication: BONE PAIN
     Dosage: 10 MG, DAILY
     Route: 042
     Dates: start: 20161211
  4. DEXAMETHASONE. [Concomitant]
     Active Substance: DEXAMETHASONE
     Dosage: 20 MG, SINGLE
     Route: 042
     Dates: start: 20161227, end: 20161227
  5. ONDANSETRON [Concomitant]
     Active Substance: ONDANSETRON
     Dosage: 24 MG, SINGLE
     Route: 042
     Dates: start: 20161227, end: 20161227
  6. MASITINIB [Suspect]
     Active Substance: MASITINIB
     Dosage: 600 MG, DAILY(5.71 MG/KG/DAY)
     Dates: end: 20170124
  7. MASITINIB [Suspect]
     Active Substance: MASITINIB
     Dosage: 600 MG, DAILY(5.71 MG/KG/DAY)
     Dates: start: 20170131, end: 20170512
  8. MORPHINUM HCL [Concomitant]
     Indication: PAIN
     Dosage: 20 MG, DAILY
     Route: 042
     Dates: end: 20161211
  9. KETOROLAC [Concomitant]
     Active Substance: KETOROLAC\KETOROLAC TROMETHAMINE
     Indication: PAIN
     Dosage: 1 DF, 2X/DAY
     Route: 048
     Dates: start: 20161211
  10. ONDANSETRON [Concomitant]
     Active Substance: ONDANSETRON
     Dosage: 24 MG, SINGLE
     Route: 042
     Dates: start: 20170116, end: 20170116
  11. DOCETAXEL. [Suspect]
     Active Substance: DOCETAXEL
     Dosage: 75 MG/M2, UNK
     Route: 041
     Dates: start: 20161206, end: 20170503
  12. MASITINIB [Suspect]
     Active Substance: MASITINIB
     Dosage: 600 MG, DAILY(5.71 MG/KG/DAY)
     Dates: start: 20161206, end: 20161208
  13. PREDNISONE. [Suspect]
     Active Substance: PREDNISONE
     Dosage: 10 MG, DAILY
     Dates: start: 20161206, end: 20170515
  14. KETOROLAC [Concomitant]
     Active Substance: KETOROLAC\KETOROLAC TROMETHAMINE
     Indication: BONE PAIN
  15. ONDANSETRON [Concomitant]
     Active Substance: ONDANSETRON
     Indication: PROPHYLAXIS
     Dosage: 24 MG, SINGLE
     Route: 042
     Dates: start: 20161206, end: 20161206

REACTIONS (2)
  - Acute lymphocytic leukaemia [Unknown]
  - Second primary malignancy [Unknown]

NARRATIVE: CASE EVENT DATE: 20170516
